FAERS Safety Report 10715473 (Version 1)
Quarter: 2015Q1

REPORT INFORMATION
  Report Type: Report from Study
  Country: US (occurrence: US)
  Receive Date: 20150116
  Receipt Date: 20150116
  Transmission Date: 20150721
  Serious: Yes (Hospitalization)
  Sender: FDA-Public Use
  Company Number: US-BIOGENIDEC-2015BI002684

PATIENT
  Sex: Female

DRUGS (1)
  1. AVONEX [Suspect]
     Active Substance: INTERFERON BETA-1A
     Indication: MULTIPLE SCLEROSIS
     Route: 030
     Dates: start: 20110101

REACTIONS (4)
  - Joint abscess [Recovered/Resolved]
  - Memory impairment [Not Recovered/Not Resolved]
  - Arthritis infective [Not Recovered/Not Resolved]
  - Multiple sclerosis relapse [Recovered/Resolved]
